FAERS Safety Report 21402633 (Version 1)
Quarter: 2022Q4

REPORT INFORMATION
  Report Type: Report from Study
  Country: IL (occurrence: None)
  Receive Date: 20221003
  Receipt Date: 20221003
  Transmission Date: 20230113
  Serious: Yes (Hospitalization)
  Sender: FDA-Public Use
  Company Number: IL-Merck Healthcare KGaA-9354313

PATIENT
  Age: 34 Year
  Sex: Female
  Weight: 103 kg

DRUGS (2)
  1. MAVENCLAD [Suspect]
     Active Substance: CLADRIBINE
     Indication: Multiple sclerosis
     Dosage: YEAR ONE MONTH ONE THERAPY
     Route: 048
     Dates: start: 20210316
  2. MAVENCLAD [Suspect]
     Active Substance: CLADRIBINE
     Dosage: YEAR ONE MONTH TWO THERAPY
     Route: 048

REACTIONS (2)
  - Cerebrospinal fluid leakage [Not Recovered/Not Resolved]
  - Meningitis viral [Recovering/Resolving]

NARRATIVE: CASE EVENT DATE: 20220901
